FAERS Safety Report 4411028-X (Version None)
Quarter: 2004Q3

REPORT INFORMATION
  Report Type: 
  Country: None (occurrence: None)
  Receive Date: 20040726
  Receipt Date: 20040720
  Transmission Date: 20050211
  Serious: No
  Sender: FDA-Public Use
  Company Number: 04-06-0863

PATIENT
  Age: 43 Year
  Sex: Male
  Weight: 178 kg

DRUGS (5)
  1. CLOZAPINE [Suspect]
     Indication: SCHIZOPHRENIA
     Dosage: 100 MG BID ORAL
     Route: 048
     Dates: start: 20040409, end: 20040518
  2. DEPAKOTE [Concomitant]
  3. MOOD STABILITY [Concomitant]
  4. PROLIXIN [Concomitant]
  5. PROLIXIN DECANOATE [Concomitant]

REACTIONS (5)
  - BLOOD CHOLESTEROL INCREASED [None]
  - BLOOD TRIGLYCERIDES INCREASED [None]
  - EOSINOPHILIA [None]
  - HYPERGLYCAEMIA [None]
  - HYPERLIPIDAEMIA [None]
